FAERS Safety Report 5117081-2 (Version None)
Quarter: 2006Q3

REPORT INFORMATION
  Report Type: 
  Country: None (occurrence: None)
  Receive Date: 20060925
  Receipt Date: 20060911
  Transmission Date: 20061208
  Serious: Yes (Disabling)
  Sender: FDA-Public Use
  Company Number: 2006103748

PATIENT
  Age: 46 Year
  Sex: Female

DRUGS (4)
  1. LYRICA [Suspect]
     Indication: COMPLEX REGIONAL PAIN SYNDROME
     Dosage: ORAL
     Route: 048
     Dates: start: 20041101, end: 20060401
  2. PARACET (PARACETAMOL) [Concomitant]
  3. SAROTEX (AMITRIPTYLINE HYDROCHLORIDE) [Concomitant]
  4. XYLOCAINE [Concomitant]

REACTIONS (8)
  - BALANCE DISORDER [None]
  - COORDINATION ABNORMAL [None]
  - DISTURBANCE IN ATTENTION [None]
  - DRY MOUTH [None]
  - EMOTIONAL DISORDER [None]
  - FEELING DRUNK [None]
  - THIRST [None]
  - WEIGHT INCREASED [None]
